FAERS Safety Report 9316414 (Version 1)
Quarter: 2013Q2

REPORT INFORMATION
  Report Type: Spontaneous
  Country: US (occurrence: None)
  Receive Date: 20130528
  Receipt Date: 20130528
  Transmission Date: 20140414
  Serious: No
  Sender: FDA-Public Use
  Company Number: None

PATIENT
  Age: 74 Year
  Sex: Male
  Weight: 62.6 kg

DRUGS (1)
  1. COMBIVENT [Suspect]
     Indication: CHRONIC OBSTRUCTIVE PULMONARY DISEASE
     Dosage: 1 PUFF? ?Q6 HOURS
     Route: 048
     Dates: start: 20130415, end: 20130422

REACTIONS (6)
  - Erythema [None]
  - Pruritus generalised [None]
  - Nasal congestion [None]
  - Dyspnoea [None]
  - Product substitution issue [None]
  - Product quality issue [None]
